FAERS Safety Report 9164443 (Version 1)
Quarter: 2013Q1

REPORT INFORMATION
  Report Type: Spontaneous
  Country: GB (occurrence: None)
  Receive Date: 20130226
  Receipt Date: 20130226
  Transmission Date: 20140127
  Serious: Yes (Disabling, Other)
  Sender: FDA-Public Use
  Company Number: 1597322

PATIENT
  Age: 51 Year
  Sex: Female

DRUGS (7)
  1. METHOTREXATE [Suspect]
     Indication: PRODUCT USED FOR UNKNOWN INDICATION
     Dosage: 30 MG MILLIGRAM(S), 1 WEEK, UNKNOWN
  2. TRIMETHOPRIM [Suspect]
     Indication: URINARY TRACT INFECTION
     Dosage: UNKNOWN, UNKNOWN, ORAL
     Route: 048
     Dates: start: 20121128, end: 20121230
  3. ASPIRIN [Concomitant]
  4. (LIMECYCLINE) [Concomitant]
  5. FOLIC ACID [Concomitant]
  6. BECLOMETASONE DIPROPIONATE [Concomitant]
  7. SALBUTAMOL [Concomitant]

REACTIONS (11)
  - Influenza like illness [None]
  - Asthenia [None]
  - Contusion [None]
  - Fatigue [None]
  - Myalgia [None]
  - Headache [None]
  - Vision blurred [None]
  - Malaise [None]
  - Drug prescribing error [None]
  - Drug interaction [None]
  - Platelet count decreased [None]
